FAERS Safety Report 15821747 (Version 2)
Quarter: 2019Q1

REPORT INFORMATION
  Report Type: Spontaneous
  Country: US (occurrence: US)
  Receive Date: 20190114
  Receipt Date: 20190204
  Transmission Date: 20190417
  Serious: No
  Sender: FDA-Public Use
  Company Number: US-LEXICON PHARMACEUTICALS, INC-18-1606-01611

PATIENT
  Sex: Male

DRUGS (11)
  1. DIOVAN [Concomitant]
     Active Substance: VALSARTAN
  2. LIPITOR [Concomitant]
     Active Substance: ATORVASTATIN CALCIUM
  3. LOMOTIL [Concomitant]
     Active Substance: ATROPINE SULFATE\DIPHENOXYLATE HYDROCHLORIDE
  4. MOTRIN [Concomitant]
     Active Substance: IBUPROFEN
  5. AFINITOR [Concomitant]
     Active Substance: EVEROLIMUS
  6. SANDOSTATIN [Concomitant]
     Active Substance: OCTREOTIDE ACETATE
  7. FENOFIBRATE. [Concomitant]
     Active Substance: FENOFIBRATE
  8. SERTRALINE [Concomitant]
     Active Substance: SERTRALINE HYDROCHLORIDE
  9. TELOTRISTAT ETHYL [Suspect]
     Active Substance: TELOTRISTAT ETHYL
     Indication: CARCINOID TUMOUR
     Route: 048
     Dates: start: 20181101
  10. PAXIL [Concomitant]
     Active Substance: PAROXETINE HYDROCHLORIDE
  11. TYLENOL [Concomitant]
     Active Substance: ACETAMINOPHEN

REACTIONS (6)
  - Nausea [Unknown]
  - Vomiting [Recovered/Resolved]
  - Off label use [Unknown]
  - Headache [Not Recovered/Not Resolved]
  - Urticaria [Recovered/Resolved]
  - Flushing [Recovered/Resolved]
